FAERS Safety Report 5934748-4 (Version None)
Quarter: 2008Q4

REPORT INFORMATION
  Report Type: 
  Country: None (occurrence: None)
  Receive Date: 20081029
  Receipt Date: 20081023
  Transmission Date: 20090506
  Serious: No
  Sender: FDA-Public Use
  Company Number: US-B.I. PHARMACEUTICALS,INC./RIDGEFIELD-2008-BP-16284BP

PATIENT
  Age: 59 Year
  Sex: Female

DRUGS (10)
  1. CATAPRES-TTS-1 [Suspect]
     Indication: HYPERTENSION
     Dosage: .1MG
     Route: 061
     Dates: start: 20080901
  2. AVAPRO [Concomitant]
     Indication: HYPERTENSION
  3. TEKTURNA [Concomitant]
     Indication: HYPERTENSION
  4. PROPRANOLOL [Concomitant]
     Indication: HYPERTENSION
  5. NAMENDA [Concomitant]
     Indication: GLAUCOMA
  6. ELAVIL [Concomitant]
     Indication: HYPERTENSION
  7. LASIX [Concomitant]
     Indication: HYPERTENSION
  8. PROGESTERONE [Concomitant]
  9. BUSPAR [Concomitant]
  10. LEVOTHYROXINE SODIUM [Concomitant]
     Indication: THYROID DISORDER

REACTIONS (5)
  - APPLICATION SITE ERYTHEMA [None]
  - APPLICATION SITE PAIN [None]
  - APPLICATION SITE RASH [None]
  - APPLICATION SITE SWELLING [None]
  - DIZZINESS [None]
